FAERS Safety Report 5917522-4 (Version None)
Quarter: 2008Q4

REPORT INFORMATION
  Report Type: 
  Country: None (occurrence: None)
  Receive Date: 20081014
  Receipt Date: 20081006
  Transmission Date: 20090506
  Serious: Yes (Hospitalization)
  Sender: FDA-Public Use
  Company Number: FR-ASTRAZENECA-2008CG01450

PATIENT
  Age: 752 Month
  Sex: Male

DRUGS (4)
  1. MOPRAL [Suspect]
     Route: 048
     Dates: end: 20080910
  2. SIMVASTATIN [Suspect]
     Route: 048
     Dates: end: 20080910
  3. METFORMINE MERCK [Concomitant]
     Route: 048
     Dates: start: 20080701, end: 20080721
  4. DIAMICRON [Concomitant]
     Route: 048

REACTIONS (4)
  - BLOOD ALKALINE PHOSPHATASE INCREASED [None]
  - DERMATITIS EXFOLIATIVE [None]
  - GAMMA-GLUTAMYLTRANSFERASE INCREASED [None]
  - TRANSAMINASES INCREASED [None]
